FAERS Safety Report 13714399 (Version 2)
Quarter: 2017Q3

REPORT INFORMATION
  Report Type: Report from Study
  Country: IT (occurrence: IT)
  Receive Date: 20170704
  Receipt Date: 20170915
  Transmission Date: 20171127
  Serious: Yes (Other)
  Sender: FDA-Public Use
  Company Number: IT-AMGEN-ITANI2017098917

PATIENT
  Age: 5 Year
  Sex: Male

DRUGS (5)
  1. FLUCONAZOL [Concomitant]
     Active Substance: FLUCONAZOLE
  2. BLINATUMOMAB [Suspect]
     Active Substance: BLINATUMOMAB
     Indication: ACUTE LYMPHOCYTIC LEUKAEMIA RECURRENT
     Dosage: 12 MUG, QD
     Route: 042
     Dates: start: 20170601
  3. METHOTREXATE. [Concomitant]
     Active Substance: METHOTREXATE
     Indication: ACUTE LYMPHOCYTIC LEUKAEMIA RECURRENT
     Dosage: 12 MG (50MG/2ML), UNK
     Route: 037
     Dates: start: 20170614, end: 20170614
  4. ACICLOVIR [Concomitant]
     Active Substance: ACYCLOVIR
  5. URSODEOXYCHOLIC ACID [Concomitant]
     Active Substance: URSODIOL

REACTIONS (1)
  - Facial paralysis [Recovered/Resolved]

NARRATIVE: CASE EVENT DATE: 20170615
